FAERS Safety Report 12441951 (Version 1)
Quarter: 2016Q2

REPORT INFORMATION
  Report Type: Spontaneous
  Country: US (occurrence: US)
  Receive Date: 20160607
  Receipt Date: 20160607
  Transmission Date: 20160815
  Serious: No
  Sender: FDA-Public Use
  Company Number: US-009507513-1606USA002684

PATIENT
  Age: 13 Year
  Sex: Male
  Weight: 54.42 kg

DRUGS (2)
  1. AVOBENZONE (+) HOMOSALATE (+) OCTISALATE (+) OCTOCRYLENE (+) OXYBENZON [Suspect]
     Active Substance: OCTINOXATE\OCTOCRYLENE
     Indication: SUNBURN
     Dosage: UNK
     Dates: start: 2015, end: 201605
  2. SOLARCAINE COOL ALOE [Suspect]
     Active Substance: LIDOCAINE HYDROCHLORIDE
     Indication: SUNBURN

REACTIONS (6)
  - Skin tightness [Recovered/Resolved]
  - Sleep disorder [Recovered/Resolved]
  - Sunburn [Recovered/Resolved]
  - Pain of skin [Recovered/Resolved]
  - Erythema [Recovered/Resolved]
  - Drug ineffective [Recovered/Resolved]

NARRATIVE: CASE EVENT DATE: 201605
